FAERS Safety Report 19028180 (Version 2)
Quarter: 2021Q2

REPORT INFORMATION
  Report Type: Report from Study
  Country: FR (occurrence: FR)
  Receive Date: 20210318
  Receipt Date: 20210519
  Transmission Date: 20210717
  Serious: Yes (Hospitalization)
  Sender: FDA-Public Use
  Company Number: FR-EMD SERONO-9225201

PATIENT
  Age: 68 Year
  Sex: Male
  Weight: 61 kg

DRUGS (6)
  1. AVELUMAB [Suspect]
     Active Substance: AVELUMAB
     Indication: GASTROINTESTINAL NEOPLASM
     Route: 042
     Dates: start: 20210203
  2. REGORAFENIB. [Suspect]
     Active Substance: REGORAFENIB
     Indication: GASTROINTESTINAL NEOPLASM
     Route: 048
     Dates: start: 20210120
  3. CORDARONE [Concomitant]
     Active Substance: AMIODARONE HYDROCHLORIDE
     Indication: PRODUCT USED FOR UNKNOWN INDICATION
     Route: 048
     Dates: start: 20210303
  4. REGORAFENIB. [Suspect]
     Active Substance: REGORAFENIB
     Route: 048
     Dates: start: 20210303
  5. INNOHEP [Concomitant]
     Active Substance: TINZAPARIN SODIUM
     Indication: PRODUCT USED FOR UNKNOWN INDICATION
     Route: 058
     Dates: start: 20210303
  6. AVELUMAB [Suspect]
     Active Substance: AVELUMAB
     Route: 042
     Dates: start: 20210303

REACTIONS (1)
  - Tachycardia [Recovered/Resolved]

NARRATIVE: CASE EVENT DATE: 20210303
